FAERS Safety Report 18534080 (Version 1)
Quarter: 2020Q4

REPORT INFORMATION
  Report Type: Spontaneous
  Country: US (occurrence: US)
  Receive Date: 20201123
  Receipt Date: 20201123
  Transmission Date: 20210114
  Serious: No
  Sender: FDA-Public Use
  Company Number: None

PATIENT
  Age: 74 Year
  Sex: Female
  Weight: 91 kg

DRUGS (16)
  1. ACETAMINOPHEN 650 MG [Concomitant]
     Active Substance: ACETAMINOPHEN
     Dates: start: 20201122
  2. AZITHROMYCIN 500 MG [Concomitant]
     Active Substance: AZITHROMYCIN ANHYDROUS
     Dates: start: 20201122
  3. ROPINIROLE 1 MG DAILY, 2 MG NIGHTLY [Concomitant]
  4. TOLTERODINE LA 4 MG DAILY [Concomitant]
  5. LAMOTRIGINE 100 MG DAILY, 200 MG NIGHTLY [Concomitant]
  6. LEVOTHYROXINE 50 MCG DAILY [Concomitant]
  7. REMDESIVIR. [Suspect]
     Active Substance: REMDESIVIR
     Indication: COVID-19
     Dates: start: 20201122, end: 20201122
  8. CYANOCOBALAMIN 1000 MCG [Concomitant]
     Active Substance: CYANOCOBALAMIN
     Dates: start: 20201122
  9. DEXAMETHASONE 6 MG [Concomitant]
     Dates: start: 20201122
  10. HEPARIN 7500 UNITS Q8H [Concomitant]
     Dates: start: 20201122
  11. INSULIN SLIDING SCALE [Concomitant]
     Dates: start: 20201122
  12. LEVETIRACETAM 500 MG BID [Concomitant]
  13. GABAPENTIN 200 MG TID [Concomitant]
     Active Substance: GABAPENTIN
  14. ATORVASTATIN 20 MG [Concomitant]
     Active Substance: ATORVASTATIN
  15. CEFTRIAXONE 1 GM [Concomitant]
     Active Substance: CEFTRIAXONE
     Dates: start: 20201121
  16. LORAZEPAM 0.5 MG DAILY AS NEEDED [Concomitant]

REACTIONS (3)
  - Tremor [None]
  - Infusion related reaction [None]
  - Chills [None]

NARRATIVE: CASE EVENT DATE: 20201122
